FAERS Safety Report 8845304 (Version 1)
Quarter: 2012Q4

REPORT INFORMATION
  Report Type: Spontaneous
  Country: ES (occurrence: None)
  Receive Date: 20121015
  Receipt Date: 20121015
  Transmission Date: 20130627
  Serious: Yes (Hospitalization)
  Sender: FDA-Public Use
  Company Number: ES-INDICUS PHARMA-000028

PATIENT
  Age: 70 Year
  Sex: Male

DRUGS (2)
  1. METFORMIN HYDROCHLORIDE [Suspect]
     Dosage: 850.00-Mg-8.0Hour
  2. GLICLAZIDE [Concomitant]

REACTIONS (8)
  - Lactic acidosis [None]
  - Vomiting [None]
  - Discomfort [None]
  - Blood pressure increased [None]
  - Metabolic acidosis [None]
  - Anion gap increased [None]
  - Hyperkalaemia [None]
  - Renal impairment [None]
